FAERS Safety Report 7724271-9 (Version None)
Quarter: 2011Q3

REPORT INFORMATION
  Report Type: 
  Country: None (occurrence: None)
  Receive Date: 20110829
  Receipt Date: 20110819
  Transmission Date: 20111222
  Serious: Yes (Hospitalization)
  Sender: FDA-Public Use
  Company Number: DKLU1072646

PATIENT
  Age: 45 Year
  Sex: Male

DRUGS (5)
  1. CARBAMAZEPINE [Concomitant]
  2. SABRIL [Suspect]
     Indication: EPILEPSY
     Dosage: 2000 MG MILLIGRAM(S), DAILY, ORAL
     Route: 048
     Dates: start: 20100920
  3. SABRIL [Suspect]
     Indication: COMPLEX PARTIAL SEIZURES
     Dosage: 2000 MG MILLIGRAM(S), DAILY, ORAL
     Route: 048
     Dates: start: 20100920
  4. ZONISAMIDE [Concomitant]
  5. TOPIRAMATE [Concomitant]

REACTIONS (1)
  - HYPOTENSION [None]
